FAERS Safety Report 19817395 (Version 1)
Quarter: 2021Q3

REPORT INFORMATION
  Report Type: Report from Study
  Country: AU (occurrence: AU)
  Receive Date: 20210910
  Receipt Date: 20210910
  Transmission Date: 20211014
  Serious: Yes (Other)
  Sender: FDA-Public Use
  Company Number: AU-REGENERON PHARMACEUTICALS, INC.-2021-83506

PATIENT

DRUGS (2)
  1. EYLEA [Suspect]
     Active Substance: AFLIBERCEPT
     Dosage: UNK; RIGHT EYE CONTINUES WITH EYLEA INJECTIONS EVERY EIGHT WEEKS
  2. EYLEA [Suspect]
     Active Substance: AFLIBERCEPT
     Indication: NEOVASCULAR AGE-RELATED MACULAR DEGENERATION
     Dosage: UNK, INTRAVITREAL INJECTION TO RIGHT EYE; TOTAL NUMBER OF DOSES UNK; LAST DOSE UNK
     Route: 031
     Dates: start: 20200514

REACTIONS (1)
  - Eye infection [Not Recovered/Not Resolved]
